FAERS Safety Report 6673124-6 (Version None)
Quarter: 2010Q2

REPORT INFORMATION
  Report Type: 
  Country: None (occurrence: None)
  Receive Date: 20100408
  Receipt Date: 20100331
  Transmission Date: 20101027
  Serious: Yes (Other)
  Sender: FDA-Public Use
  Company Number: GB-ELI_LILLY_AND_COMPANY-GB200912002946

PATIENT
  Sex: Male
  Weight: 105 kg

DRUGS (8)
  1. BYETTA [Suspect]
     Dosage: 5 UG, 2/D
  2. BYETTA [Suspect]
     Dosage: 10 UG, 2/D
     Dates: end: 20091204
  3. GLICLAZIDE [Concomitant]
     Indication: DIABETES MELLITUS
     Dosage: 160 MG, 2/D
     Route: 048
  4. METFORMIN [Concomitant]
     Indication: DIABETES MELLITUS
     Dosage: 500 / 1000 MG
     Route: 048
  5. DOXAZOSIN [Concomitant]
     Indication: HYPERTENSION
     Dosage: 12 MG, DAILY (1/D)
     Route: 048
  6. AMLODIPINE [Concomitant]
     Dosage: 10 MG, DAILY (1/D)
     Route: 048
  7. ASPIRIN [Concomitant]
     Indication: PROPHYLAXIS
     Dosage: 75 MG, DAILY (1/D)
     Route: 048
     Dates: end: 20091204
  8. ASPIRIN [Concomitant]

REACTIONS (2)
  - BACK PAIN [None]
  - HAEMATURIA [None]
